FAERS Safety Report 25265143 (Version 1)
Quarter: 2025Q2

REPORT INFORMATION
  Report Type: Report from Study
  Country: US (occurrence: US)
  Receive Date: 20250502
  Receipt Date: 20250502
  Transmission Date: 20250717
  Serious: Yes (Hospitalization)
  Sender: EISAI
  Company Number: US-Eisai-EC-2025-185293

PATIENT
  Age: 48 Year
  Sex: Female

DRUGS (2)
  1. LENVIMA [Suspect]
     Active Substance: LENVATINIB
     Indication: Hepatic cancer
     Dates: start: 202412
  2. LENVIMA [Suspect]
     Active Substance: LENVATINIB
     Dates: end: 202502

REACTIONS (4)
  - Loss of consciousness [Unknown]
  - Incoherent [Not Recovered/Not Resolved]
  - Memory impairment [Not Recovered/Not Resolved]
  - Platelet count decreased [Unknown]

NARRATIVE: CASE EVENT DATE: 20241201
